FAERS Safety Report 7945939-5 (Version None)
Quarter: 2011Q4

REPORT INFORMATION
  Report Type: 
  Country: None (occurrence: None)
  Receive Date: 20111129
  Receipt Date: 20111124
  Transmission Date: 20120403
  Serious: Yes (Death, Other)
  Sender: FDA-Public Use
  Company Number: PHHY2011JP103481

PATIENT
  Age: 72 Year
  Sex: Female

DRUGS (6)
  1. VINCRISTINE [Suspect]
     Indication: EPSTEIN-BARR VIRUS ASSOCIATED LYMPHOPROLIFERATIVE DISORDER
     Dosage: 1.4 MG/M2 ON DAY 1
  2. PREDNISOLONE [Suspect]
     Dosage: 100 MG ON DAYS 1-5
  3. DOXORUBICIN HCL [Suspect]
     Indication: EPSTEIN-BARR VIRUS ASSOCIATED LYMPHOPROLIFERATIVE DISORDER
     Dosage: 50 MG/M2 ON DAY 1
  4. CYCLOPHOSPHAMIDE [Suspect]
     Indication: EPSTEIN-BARR VIRUS ASSOCIATED LYMPHOPROLIFERATIVE DISORDER
     Dosage: 750 MG/M2 ON DAY 1
  5. PREDNISOLONE [Suspect]
     Indication: EPSTEIN-BARR VIRUS ASSOCIATED LYMPHOPROLIFERATIVE DISORDER
     Dosage: 1-2 MG/KG/DAY
  6. CYCLOSPORINE [Suspect]
     Dosage: 3 MG/KG, QD

REACTIONS (3)
  - NEUTROPENIA [None]
  - MULTI-ORGAN FAILURE [None]
  - DISEASE PROGRESSION [None]
